FAERS Safety Report 7209697-4 (Version None)
Quarter: 2011Q1

REPORT INFORMATION
  Report Type: 
  Country: None (occurrence: None)
  Receive Date: 20110104
  Receipt Date: 20101221
  Transmission Date: 20110831
  Serious: Yes (Hospitalization)
  Sender: FDA-Public Use
  Company Number: BG-BAYER-2010-005339

PATIENT
  Sex: Male
  Weight: 82.2 kg

DRUGS (9)
  1. RIVAROXABAN [Suspect]
     Indication: ACUTE CORONARY SYNDROME
     Dosage: DOSAGE FORM: TABLET
     Route: 048
     Dates: start: 20090930, end: 20101207
  2. RIVAROXABAN [Suspect]
     Dosage: DOSAGE FORM: TABLET
     Route: 048
     Dates: start: 20090929, end: 20090929
  3. ASPIRIN [Suspect]
     Indication: ACUTE CORONARY SYNDROME
     Route: 048
  4. ATORVASTATIN [Concomitant]
  5. TRITACE [Concomitant]
  6. BISOPROLOL [Concomitant]
  7. ISOSORBIDE DINITRATE [Concomitant]
  8. PROPAFENONE HCL [Concomitant]
  9. CLOPIDOGREL [Suspect]
     Dates: end: 20091002

REACTIONS (2)
  - NEPHROLITHIASIS [None]
  - HAEMATURIA [None]
